FAERS Safety Report 22658362 (Version 1)
Quarter: 2023Q2

REPORT INFORMATION
  Report Type: Spontaneous
  Country: US (occurrence: US)
  Receive Date: 20230630
  Receipt Date: 20230630
  Transmission Date: 20230722
  Serious: No
  Sender: FDA-Public Use
  Company Number: US-PFIZER INC-202300231514

PATIENT
  Age: 65 Year
  Sex: Female

DRUGS (23)
  1. XELJANZ [Suspect]
     Active Substance: TOFACITINIB CITRATE
     Dosage: UNK
     Dates: start: 2016
  2. PANTOPRAZOLE SODIUM [Concomitant]
     Active Substance: PANTOPRAZOLE SODIUM
  3. PNEUMOVAX 23 [Concomitant]
     Active Substance: PNEUMOCOCCAL VACCINE, POLYVALENT 23
  4. CELEBREX [Concomitant]
     Active Substance: CELECOXIB
  5. TRAMADOL [Concomitant]
     Active Substance: TRAMADOL
  6. HYDROXYCHLOROQUINE SULFATE [Concomitant]
     Active Substance: HYDROXYCHLOROQUINE SULFATE
  7. ATORVASTATIN CALCIUM [Concomitant]
     Active Substance: ATORVASTATIN CALCIUM
  8. ELETRIPTAN [Concomitant]
     Active Substance: ELETRIPTAN
  9. AMITRIPTYLINE [Concomitant]
     Active Substance: AMITRIPTYLINE
  10. VALACYCLOVIR [Concomitant]
     Active Substance: VALACYCLOVIR HYDROCHLORIDE
  11. TYLENOL [Concomitant]
     Active Substance: ACETAMINOPHEN
  12. HERBALS\TURMERIC [Concomitant]
     Active Substance: HERBALS\TURMERIC
  13. GLUCOSAMINE + CHONDORITIN [Concomitant]
  14. HOMOCYSTEINE FORMULA [Concomitant]
  15. VITAMIN D3 [Concomitant]
     Active Substance: CHOLECALCIFEROL
  16. MELATONIN [Concomitant]
     Active Substance: MELATONIN
  17. METHIMAZOLE [Concomitant]
     Active Substance: METHIMAZOLE
  18. FISH OIL [Concomitant]
     Active Substance: FISH OIL
  19. LEVOMEFOLIC ACID [Concomitant]
     Active Substance: LEVOMEFOLIC ACID
  20. EVENING PRIMROSE OIL [OENOTHERA BIENNIS] [Concomitant]
  21. MAGNESIUM [Concomitant]
     Active Substance: MAGNESIUM
  22. MODERNA COVID-19 VACCINE [Concomitant]
     Active Substance: ELASOMERAN
  23. BIOTIN [Concomitant]
     Active Substance: BIOTIN

REACTIONS (1)
  - COVID-19 [Unknown]
